FAERS Safety Report 6579677-0 (Version None)
Quarter: 2010Q1

REPORT INFORMATION
  Report Type: 
  Country: None (occurrence: None)
  Receive Date: 20100203
  Receipt Date: 20100118
  Transmission Date: 20100710
  Serious: Yes (Death)
  Sender: FDA-Public Use
  Company Number: B0627863A

PATIENT
  Age: 21 Year
  Sex: Female

DRUGS (4)
  1. QUETIAPINE [Suspect]
     Dosage: ORAL
     Route: 048
  2. BUPROPION HYDROCHLORIDE [Suspect]
     Dosage: ORAL
     Route: 048
  3. CITALOPRAM (GENERIC) (CITALOPRAM) [Suspect]
     Dosage: ORAL
     Route: 048
  4. TRAZODONE (GENERIC) (TRAZODONE) [Suspect]
     Dosage: ORAL
     Route: 048

REACTIONS (2)
  - CARDIO-RESPIRATORY ARREST [None]
  - COMPLETED SUICIDE [None]
